FAERS Safety Report 24970429 (Version 1)
Quarter: 2025Q1

REPORT INFORMATION
  Report Type: Spontaneous
  Country: US (occurrence: US)
  Receive Date: 20250214
  Receipt Date: 20250214
  Transmission Date: 20250408
  Serious: Yes (Hospitalization, Other)
  Sender: EXELA PHARMA SCIENCES
  Company Number: US-EXELAPHARMA-2025EXLA00012

PATIENT
  Age: 63 Year
  Sex: Female
  Weight: 106 kg

DRUGS (13)
  1. MIDAZOLAM [Suspect]
     Active Substance: MIDAZOLAM
     Indication: Anxiety
     Route: 042
  2. LEVOTHYROXINE [Concomitant]
     Active Substance: LEVOTHYROXINE
  3. ATORVASTATIN [Concomitant]
     Active Substance: ATORVASTATIN
  4. SERTRALINE [Concomitant]
     Active Substance: SERTRALINE HYDROCHLORIDE
  5. QUETIAPINE [Concomitant]
     Active Substance: QUETIAPINE
  6. ATARAX [Concomitant]
     Active Substance: HYDROXYZINE HYDROCHLORIDE
  7. GABAPENTIN [Concomitant]
     Active Substance: GABAPENTIN
  8. COGENTIN [Concomitant]
     Active Substance: BENZTROPINE MESYLATE
  9. PROPOFOL [Concomitant]
     Active Substance: PROPOFOL
     Indication: General anaesthesia
  10. FENTANYL [Concomitant]
     Active Substance: FENTANYL
     Indication: General anaesthesia
  11. DEXMEDETOMIDINE HYDROCHLORIDE [Concomitant]
     Active Substance: DEXMEDETOMIDINE HYDROCHLORIDE
     Indication: Agitation
  12. ROCURONIUM [Concomitant]
     Active Substance: ROCURONIUM BROMIDE
     Indication: Maintenance of anaesthesia
  13. SUGAMMADEX [Concomitant]
     Active Substance: SUGAMMADEX
     Indication: Postoperative care

REACTIONS (14)
  - Paratonia [Recovered/Resolved]
  - Asterixis [Recovered/Resolved]
  - Myoclonus [Recovered/Resolved]
  - Toxic encephalopathy [Recovered/Resolved]
  - Paradoxical drug reaction [Recovered/Resolved]
  - Mental status changes [Recovered/Resolved]
  - Tremor [Recovered/Resolved]
  - Agitation [Recovered/Resolved]
  - Anxiety [Recovered/Resolved]
  - Delirium [Recovered/Resolved]
  - Product use in unapproved indication [Unknown]
  - Product use in unapproved indication [None]
  - Tremor [None]
  - Disorientation [None]
